FAERS Safety Report 25821809 (Version 1)
Quarter: 2025Q3

REPORT INFORMATION
  Report Type: Spontaneous
  Country: IN (occurrence: IN)
  Receive Date: 20250919
  Receipt Date: 20250919
  Transmission Date: 20251021
  Serious: Yes (Other)
  Sender: NOVITIUM PHARMA
  Company Number: IN-NOVITIUMPHARMA-2025INNVP02350

PATIENT
  Age: 49 Year
  Sex: Male

DRUGS (1)
  1. FLUOXETINE [Suspect]
     Active Substance: FLUOXETINE HYDROCHLORIDE
     Indication: Product used for unknown indication

REACTIONS (1)
  - Hepatitis cholestatic [Unknown]
